FAERS Safety Report 5986268-9 (Version None)
Quarter: 2008Q4

REPORT INFORMATION
  Report Type: 
  Country: None (occurrence: None)
  Receive Date: 20081209
  Receipt Date: 20081201
  Transmission Date: 20090506
  Serious: Yes (Hospitalization)
  Sender: FDA-Public Use
  Company Number: CH-BRISTOL-MYERS SQUIBB COMPANY-14435424

PATIENT
  Age: 81 Year
  Sex: Female

DRUGS (13)
  1. GLUCOPHAGE [Suspect]
     Route: 048
     Dates: end: 20080617
  2. METOPROLOL TARTRATE [Suspect]
     Route: 048
     Dates: end: 20080620
  3. DIAMICRON [Suspect]
     Route: 048
     Dates: end: 20080618
  4. SIMCORA [Suspect]
     Route: 048
     Dates: end: 20080625
  5. ASPIRIN [Suspect]
     Route: 048
     Dates: end: 20080617
  6. FOLVITE [Suspect]
     Route: 048
     Dates: end: 20080709
  7. EFFEXOR [Suspect]
     Route: 048
     Dates: end: 20080620
  8. ATACAND PLUS [Concomitant]
     Indication: ESSENTIAL HYPERTENSION
     Route: 048
     Dates: end: 20080617
  9. EUTHYROX [Concomitant]
     Route: 048
  10. VITARUBIN [Concomitant]
     Dates: start: 20080612, end: 20080625
  11. CALCIMAGON-D3 [Concomitant]
     Route: 048
     Dates: start: 20080617, end: 20080723
  12. ZOLPIDEM [Concomitant]
     Dates: start: 20080625, end: 20080709
  13. ZYRTEC [Concomitant]

REACTIONS (2)
  - PRURITUS [None]
  - RASH MACULAR [None]
